FAERS Safety Report 20735924 (Version 2)
Quarter: 2022Q2

REPORT INFORMATION
  Report Type: Spontaneous
  Country: US (occurrence: US)
  Receive Date: 20220421
  Receipt Date: 20220427
  Transmission Date: 20220721
  Serious: No
  Sender: FDA-Public Use
  Company Number: US-ORGANON-O2204USA001443

PATIENT
  Sex: Male

DRUGS (6)
  1. PREGNYL [Suspect]
     Active Substance: CHORIOGONADOTROPIN ALFA
     Indication: Hypogonadism male
     Dosage: INJECT 500 UNITS IN THE MUSCLE THREE TIMES PER WEEK
     Route: 030
     Dates: start: 20210826
  2. PREGNYL [Suspect]
     Active Substance: CHORIOGONADOTROPIN ALFA
     Dosage: INJECT 500 UNITS IN THE MUSCLE THREE TIMES PER WEEK
     Route: 030
     Dates: start: 2022
  3. PREGNYL [Suspect]
     Active Substance: CHORIOGONADOTROPIN ALFA
     Dosage: INJECT 500 UNITS IN THE MUSCLE THREE TIMES PER WEEK
     Route: 030
     Dates: start: 20220415
  4. STERILE WATER [Suspect]
     Active Substance: WATER
     Indication: Hypogonadism male
     Dosage: UNK
     Dates: start: 20210826
  5. STERILE WATER [Suspect]
     Active Substance: WATER
     Dosage: UNK
     Dates: start: 2022
  6. STERILE WATER [Suspect]
     Active Substance: WATER
     Dosage: UNK
     Dates: start: 20220415

REACTIONS (5)
  - Drug ineffective [Unknown]
  - Poor quality product administered [Unknown]
  - Product packaging quantity issue [Unknown]
  - Product physical issue [Unknown]
  - Drug ineffective [Unknown]

NARRATIVE: CASE EVENT DATE: 20220101
